FAERS Safety Report 14654022 (Version 3)
Quarter: 2019Q1

REPORT INFORMATION
  Report Type: Spontaneous
  Country: US (occurrence: US)
  Receive Date: 20180319
  Receipt Date: 20190314
  Transmission Date: 20190417
  Serious: No
  Sender: FDA-Public Use
  Company Number: US-PFIZER INC-2018017611

PATIENT
  Age: 18 Year
  Sex: Female
  Weight: 47.6 kg

DRUGS (5)
  1. PROVERA [Concomitant]
     Active Substance: MEDROXYPROGESTERONE ACETATE
     Indication: HYPOPITUITARISM
     Dosage: 10 MG FOR 10 DAYS EACH MONTH
     Route: 048
  2. LEVOTHYROXINE. [Concomitant]
     Active Substance: LEVOTHYROXINE
     Indication: HYPOPITUITARISM
     Dosage: 88 UG, 1X/DAY
     Route: 048
  3. GENOTROPIN [Suspect]
     Active Substance: SOMATROPIN
     Indication: BLOOD GROWTH HORMONE
     Dosage: 0.7 MG, 1X/DAY (5 DAYS A WEEK)
     Dates: start: 20150919
  4. HYDROCORTISONE. [Concomitant]
     Active Substance: HYDROCORTISONE
     Indication: HYPOPITUITARISM
     Dosage: 12.5 MG, DAILY (ONE TABLET AND A HALF IN THE MORNING AND ONE TABLET AT NIGHT)
  5. PREMARIN [Concomitant]
     Active Substance: ESTROGENS, CONJUGATED
     Indication: HYPOPITUITARISM
     Dosage: 0.625 MG, 1X/DAY
     Route: 048

REACTIONS (2)
  - Constipation [Unknown]
  - Injection site bruising [Unknown]
